FAERS Safety Report 7623577-1 (Version None)
Quarter: 2011Q3

REPORT INFORMATION
  Report Type: 
  Country: None (occurrence: None)
  Receive Date: 20110720
  Receipt Date: 20110708
  Transmission Date: 20111222
  Serious: Yes (Hospitalization)
  Sender: FDA-Public Use
  Company Number: FR-UCBSA-036868

PATIENT
  Age: 45 Year
  Sex: Female

DRUGS (9)
  1. XYZAL [Suspect]
     Route: 048
  2. ANAFRANIL [Suspect]
     Dosage: 75MG
     Route: 048
     Dates: end: 20100827
  3. TEGRETOL [Suspect]
     Dosage: 400MG
     Route: 048
     Dates: end: 20100901
  4. VENTOLIN [Suspect]
  5. PRAZEPAM [Suspect]
     Dosage: 40MG
     Route: 048
  6. ATARAX [Suspect]
     Dosage: 25MG
     Route: 048
     Dates: start: 20100821, end: 20100830
  7. ATHYMIL [Suspect]
     Dosage: 30MG
     Route: 048
     Dates: end: 20100902
  8. CLONAZEPAM [Suspect]
     Route: 048
     Dates: start: 20100827, end: 20100830
  9. SINGULAIR [Suspect]

REACTIONS (1)
  - CYTOLYTIC HEPATITIS [None]
